FAERS Safety Report 5890731-9 (Version None)
Quarter: 2008Q3

REPORT INFORMATION
  Report Type: 
  Country: None (occurrence: None)
  Receive Date: 20080918
  Receipt Date: 20080903
  Transmission Date: 20090109
  Serious: Yes (Disabling)
  Sender: FDA-Public Use
  Company Number: 2008S1016123

PATIENT
  Age: 84 Year
  Sex: Female

DRUGS (6)
  1. INDAPAMIDE [Suspect]
     Indication: CEREBROVASCULAR ACCIDENT PROPHYLAXIS
     Dosage: 2.5 MG; ORAL
     Route: 048
     Dates: start: 20080730, end: 20080806
  2. ADIZEM [Concomitant]
  3. ASPIRIN [Concomitant]
  4. LEVOTHYROXINE SODIUM [Concomitant]
  5. LISINOPRIL [Concomitant]
  6. SIMVASTATIN [Concomitant]

REACTIONS (3)
  - DELIRIUM [None]
  - HYPOKALAEMIA [None]
  - HYPONATRAEMIA [None]
